FAERS Safety Report 23663499 (Version 22)
Quarter: 2025Q4

REPORT INFORMATION
  Report Type: Spontaneous
  Country: GB (occurrence: None)
  Receive Date: 20240322
  Receipt Date: 20251121
  Transmission Date: 20260118
  Serious: Yes (Other)
  Sender: ORION
  Company Number: GB-SANDOZ-SDZ2023GB048792

PATIENT
  Sex: Male

DRUGS (397)
  1. METHOTREXATE [Suspect]
     Active Substance: METHOTREXATE
     Indication: Psoriasis
     Dosage: 6 DOSAGE FORM EVERY DAY
  2. METHOTREXATE [Suspect]
     Active Substance: METHOTREXATE
  3. METHOTREXATE [Suspect]
     Active Substance: METHOTREXATE
  4. METHOTREXATE [Suspect]
     Active Substance: METHOTREXATE
  5. METHOTREXATE [Suspect]
     Active Substance: METHOTREXATE
  6. METHOTREXATE [Suspect]
     Active Substance: METHOTREXATE
  7. METHOTREXATE [Suspect]
     Active Substance: METHOTREXATE
  8. METHOTREXATE [Suspect]
     Active Substance: METHOTREXATE
  9. METHOTREXATE [Suspect]
     Active Substance: METHOTREXATE
  10. METHOTREXATE [Suspect]
     Active Substance: METHOTREXATE
  11. METHOTREXATE [Suspect]
     Active Substance: METHOTREXATE
  12. METHOTREXATE [Suspect]
     Active Substance: METHOTREXATE
  13. METHOTREXATE [Suspect]
     Active Substance: METHOTREXATE
  14. METHOTREXATE [Suspect]
     Active Substance: METHOTREXATE
  15. METHOTREXATE [Suspect]
     Active Substance: METHOTREXATE
  16. METHOTREXATE [Suspect]
     Active Substance: METHOTREXATE
  17. METHOTREXATE [Suspect]
     Active Substance: METHOTREXATE
  18. METHOTREXATE [Suspect]
     Active Substance: METHOTREXATE
  19. METHOTREXATE [Suspect]
     Active Substance: METHOTREXATE
  20. METHOTREXATE [Suspect]
     Active Substance: METHOTREXATE
  21. METHOTREXATE [Suspect]
     Active Substance: METHOTREXATE
  22. METHOTREXATE [Suspect]
     Active Substance: METHOTREXATE
  23. METHOTREXATE [Suspect]
     Active Substance: METHOTREXATE
  24. METHOTREXATE [Suspect]
     Active Substance: METHOTREXATE
  25. METHOTREXATE [Suspect]
     Active Substance: METHOTREXATE
  26. METHOTREXATE [Suspect]
     Active Substance: METHOTREXATE
  27. METHOTREXATE [Suspect]
     Active Substance: METHOTREXATE
  28. METHOTREXATE [Suspect]
     Active Substance: METHOTREXATE
  29. METHOTREXATE [Suspect]
     Active Substance: METHOTREXATE
  30. METHOTREXATE [Suspect]
     Active Substance: METHOTREXATE
  31. METHOTREXATE [Suspect]
     Active Substance: METHOTREXATE
  32. METHOTREXATE [Suspect]
     Active Substance: METHOTREXATE
  33. METHOTREXATE [Suspect]
     Active Substance: METHOTREXATE
  34. METHOTREXATE [Suspect]
     Active Substance: METHOTREXATE
  35. METHOTREXATE [Suspect]
     Active Substance: METHOTREXATE
  36. METHOTREXATE [Suspect]
     Active Substance: METHOTREXATE
  37. METHOTREXATE [Suspect]
     Active Substance: METHOTREXATE
  38. METHOTREXATE [Suspect]
     Active Substance: METHOTREXATE
  39. ACITRETIN [Suspect]
     Active Substance: ACITRETIN
     Indication: Psoriasis
  40. ACITRETIN [Suspect]
     Active Substance: ACITRETIN
  41. ACITRETIN [Suspect]
     Active Substance: ACITRETIN
  42. ACITRETIN [Suspect]
     Active Substance: ACITRETIN
  43. ACITRETIN [Suspect]
     Active Substance: ACITRETIN
  44. ACITRETIN [Suspect]
     Active Substance: ACITRETIN
  45. ACITRETIN [Suspect]
     Active Substance: ACITRETIN
  46. ACITRETIN [Suspect]
     Active Substance: ACITRETIN
  47. ACITRETIN [Suspect]
     Active Substance: ACITRETIN
  48. ACITRETIN [Suspect]
     Active Substance: ACITRETIN
  49. ACITRETIN [Suspect]
     Active Substance: ACITRETIN
  50. ACITRETIN [Suspect]
     Active Substance: ACITRETIN
  51. ACITRETIN [Suspect]
     Active Substance: ACITRETIN
  52. ACITRETIN [Suspect]
     Active Substance: ACITRETIN
  53. ACITRETIN [Suspect]
     Active Substance: ACITRETIN
  54. ACITRETIN [Suspect]
     Active Substance: ACITRETIN
  55. ACITRETIN [Suspect]
     Active Substance: ACITRETIN
  56. ACITRETIN [Suspect]
     Active Substance: ACITRETIN
  57. ACITRETIN [Suspect]
     Active Substance: ACITRETIN
  58. ACITRETIN [Suspect]
     Active Substance: ACITRETIN
  59. ACITRETIN [Suspect]
     Active Substance: ACITRETIN
  60. ACITRETIN [Suspect]
     Active Substance: ACITRETIN
  61. ACITRETIN [Suspect]
     Active Substance: ACITRETIN
  62. ACITRETIN [Suspect]
     Active Substance: ACITRETIN
  63. ACITRETIN [Suspect]
     Active Substance: ACITRETIN
  64. ACITRETIN [Suspect]
     Active Substance: ACITRETIN
  65. ACITRETIN [Suspect]
     Active Substance: ACITRETIN
  66. ACITRETIN [Suspect]
     Active Substance: ACITRETIN
  67. ACITRETIN [Suspect]
     Active Substance: ACITRETIN
     Dosage: TIME INTERVAL: 0.33333333 DAYS
  68. ACITRETIN [Suspect]
     Active Substance: ACITRETIN
  69. ACITRETIN [Suspect]
     Active Substance: ACITRETIN
  70. ACITRETIN [Suspect]
     Active Substance: ACITRETIN
  71. ACITRETIN [Suspect]
     Active Substance: ACITRETIN
  72. ACITRETIN [Suspect]
     Active Substance: ACITRETIN
  73. ACITRETIN [Suspect]
     Active Substance: ACITRETIN
  74. ACITRETIN [Suspect]
     Active Substance: ACITRETIN
  75. ACITRETIN [Suspect]
     Active Substance: ACITRETIN
  76. ACITRETIN [Suspect]
     Active Substance: ACITRETIN
  77. ACITRETIN [Suspect]
     Active Substance: ACITRETIN
  78. ACITRETIN [Suspect]
     Active Substance: ACITRETIN
  79. ACITRETIN [Suspect]
     Active Substance: ACITRETIN
  80. ACITRETIN [Suspect]
     Active Substance: ACITRETIN
  81. ACITRETIN [Suspect]
     Active Substance: ACITRETIN
  82. ACITRETIN [Suspect]
     Active Substance: ACITRETIN
  83. ACITRETIN [Suspect]
     Active Substance: ACITRETIN
  84. ACITRETIN [Suspect]
     Active Substance: ACITRETIN
  85. ACITRETIN [Suspect]
     Active Substance: ACITRETIN
  86. ACITRETIN [Suspect]
     Active Substance: ACITRETIN
  87. ACITRETIN [Suspect]
     Active Substance: ACITRETIN
     Dosage: TIME INTERVAL: 0.33333333 DAYS
  88. CYCLOSPORINE [Suspect]
     Active Substance: CYCLOSPORINE
     Indication: Psoriasis
  89. CYCLOSPORINE [Suspect]
     Active Substance: CYCLOSPORINE
  90. CYCLOSPORINE [Suspect]
     Active Substance: CYCLOSPORINE
  91. CYCLOSPORINE [Suspect]
     Active Substance: CYCLOSPORINE
  92. CYCLOSPORINE [Suspect]
     Active Substance: CYCLOSPORINE
  93. CYCLOSPORINE [Suspect]
     Active Substance: CYCLOSPORINE
  94. CYCLOSPORINE [Suspect]
     Active Substance: CYCLOSPORINE
  95. CYCLOSPORINE [Suspect]
     Active Substance: CYCLOSPORINE
  96. CYCLOSPORINE [Suspect]
     Active Substance: CYCLOSPORINE
  97. CYCLOSPORINE [Suspect]
     Active Substance: CYCLOSPORINE
  98. CYCLOSPORINE [Suspect]
     Active Substance: CYCLOSPORINE
  99. CYCLOSPORINE [Suspect]
     Active Substance: CYCLOSPORINE
  100. CYCLOSPORINE [Suspect]
     Active Substance: CYCLOSPORINE
  101. CYCLOSPORINE [Suspect]
     Active Substance: CYCLOSPORINE
  102. CYCLOSPORINE [Suspect]
     Active Substance: CYCLOSPORINE
  103. CYCLOSPORINE [Suspect]
     Active Substance: CYCLOSPORINE
  104. CYCLOSPORINE [Suspect]
     Active Substance: CYCLOSPORINE
  105. CYCLOSPORINE [Suspect]
     Active Substance: CYCLOSPORINE
  106. CYCLOSPORINE [Suspect]
     Active Substance: CYCLOSPORINE
  107. CYCLOSPORINE [Suspect]
     Active Substance: CYCLOSPORINE
  108. CYCLOSPORINE [Suspect]
     Active Substance: CYCLOSPORINE
  109. CYCLOSPORINE [Suspect]
     Active Substance: CYCLOSPORINE
  110. CYCLOSPORINE [Suspect]
     Active Substance: CYCLOSPORINE
  111. CYCLOSPORINE [Suspect]
     Active Substance: CYCLOSPORINE
  112. CYCLOSPORINE [Suspect]
     Active Substance: CYCLOSPORINE
  113. CYCLOSPORINE [Suspect]
     Active Substance: CYCLOSPORINE
  114. COCODAMOL [Suspect]
     Active Substance: ACETAMINOPHEN\CODEINE PHOSPHATE
     Indication: Product used for unknown indication
     Dosage: STRENGTH: 30/500MG
  115. COCODAMOL [Suspect]
     Active Substance: ACETAMINOPHEN\CODEINE PHOSPHATE
  116. COCODAMOL [Suspect]
     Active Substance: ACETAMINOPHEN\CODEINE PHOSPHATE
     Dosage: STRENGTH: 30/500MG
  117. COCODAMOL [Suspect]
     Active Substance: ACETAMINOPHEN\CODEINE PHOSPHATE
     Dosage: STRENGTH: 30/500MG;
  118. COCODAMOL [Suspect]
     Active Substance: ACETAMINOPHEN\CODEINE PHOSPHATE
  119. COCODAMOL [Suspect]
     Active Substance: ACETAMINOPHEN\CODEINE PHOSPHATE
  120. COCODAMOL [Suspect]
     Active Substance: ACETAMINOPHEN\CODEINE PHOSPHATE
  121. COCODAMOL [Suspect]
     Active Substance: ACETAMINOPHEN\CODEINE PHOSPHATE
  122. COCODAMOL [Suspect]
     Active Substance: ACETAMINOPHEN\CODEINE PHOSPHATE
  123. COCODAMOL [Suspect]
     Active Substance: ACETAMINOPHEN\CODEINE PHOSPHATE
     Dosage: TIME INTERVAL: 0.33333333 DAYS, 30/500MG
  124. COCODAMOL [Suspect]
     Active Substance: ACETAMINOPHEN\CODEINE PHOSPHATE
     Dosage: STRENGTH: 30/500MG
  125. COCODAMOL [Suspect]
     Active Substance: ACETAMINOPHEN\CODEINE PHOSPHATE
  126. COCODAMOL [Suspect]
     Active Substance: ACETAMINOPHEN\CODEINE PHOSPHATE
     Dosage: STRENGTH: 30/500MG
  127. COCODAMOL [Suspect]
     Active Substance: ACETAMINOPHEN\CODEINE PHOSPHATE
  128. COCODAMOL [Suspect]
     Active Substance: ACETAMINOPHEN\CODEINE PHOSPHATE
  129. COCODAMOL [Suspect]
     Active Substance: ACETAMINOPHEN\CODEINE PHOSPHATE
     Dosage: 6 DF, QD (2 DOSAGE FORM, TID (30/500MG 2 TABLETS TDS); TIME INTERVAL:0.33333333 DAYS
  130. COCODAMOL [Suspect]
     Active Substance: ACETAMINOPHEN\CODEINE PHOSPHATE
     Dosage: 30/500MG 2 TABLETS TDS
  131. COCODAMOL [Suspect]
     Active Substance: ACETAMINOPHEN\CODEINE PHOSPHATE
     Dosage: 1 TIME EVERY DAY
  132. COCODAMOL [Suspect]
     Active Substance: ACETAMINOPHEN\CODEINE PHOSPHATE
  133. COCODAMOL [Suspect]
     Active Substance: ACETAMINOPHEN\CODEINE PHOSPHATE
  134. COCODAMOL [Suspect]
     Active Substance: ACETAMINOPHEN\CODEINE PHOSPHATE
  135. COCODAMOL [Suspect]
     Active Substance: ACETAMINOPHEN\CODEINE PHOSPHATE
  136. COCODAMOL [Suspect]
     Active Substance: ACETAMINOPHEN\CODEINE PHOSPHATE
  137. COCODAMOL [Suspect]
     Active Substance: ACETAMINOPHEN\CODEINE PHOSPHATE
     Dosage: 6 DOSAGE FORM PER DAY
  138. COCODAMOL [Suspect]
     Active Substance: ACETAMINOPHEN\CODEINE PHOSPHATE
  139. COCODAMOL [Suspect]
     Active Substance: ACETAMINOPHEN\CODEINE PHOSPHATE
  140. COSENTYX [Suspect]
     Active Substance: SECUKINUMAB
     Indication: Product used for unknown indication
  141. COSENTYX [Suspect]
     Active Substance: SECUKINUMAB
  142. COSENTYX [Suspect]
     Active Substance: SECUKINUMAB
  143. COSENTYX [Suspect]
     Active Substance: SECUKINUMAB
  144. COSENTYX [Suspect]
     Active Substance: SECUKINUMAB
  145. COSENTYX [Suspect]
     Active Substance: SECUKINUMAB
  146. COSENTYX [Suspect]
     Active Substance: SECUKINUMAB
  147. COSENTYX [Suspect]
     Active Substance: SECUKINUMAB
  148. COSENTYX [Suspect]
     Active Substance: SECUKINUMAB
  149. COSENTYX [Suspect]
     Active Substance: SECUKINUMAB
  150. COSENTYX [Suspect]
     Active Substance: SECUKINUMAB
  151. COSENTYX [Suspect]
     Active Substance: SECUKINUMAB
  152. COSENTYX [Suspect]
     Active Substance: SECUKINUMAB
  153. COSENTYX [Suspect]
     Active Substance: SECUKINUMAB
  154. COSENTYX [Suspect]
     Active Substance: SECUKINUMAB
  155. COSENTYX [Suspect]
     Active Substance: SECUKINUMAB
  156. COSENTYX [Suspect]
     Active Substance: SECUKINUMAB
  157. COSENTYX [Suspect]
     Active Substance: SECUKINUMAB
  158. COSENTYX [Suspect]
     Active Substance: SECUKINUMAB
  159. COSENTYX [Suspect]
     Active Substance: SECUKINUMAB
  160. COSENTYX [Suspect]
     Active Substance: SECUKINUMAB
  161. COSENTYX [Suspect]
     Active Substance: SECUKINUMAB
  162. COSENTYX [Suspect]
     Active Substance: SECUKINUMAB
  163. COSENTYX [Suspect]
     Active Substance: SECUKINUMAB
  164. COSENTYX [Suspect]
     Active Substance: SECUKINUMAB
  165. COSENTYX [Suspect]
     Active Substance: SECUKINUMAB
  166. COSENTYX [Suspect]
     Active Substance: SECUKINUMAB
  167. COSENTYX [Suspect]
     Active Substance: SECUKINUMAB
  168. COSENTYX [Suspect]
     Active Substance: SECUKINUMAB
  169. COSENTYX [Suspect]
     Active Substance: SECUKINUMAB
  170. COSENTYX [Suspect]
     Active Substance: SECUKINUMAB
  171. COSENTYX [Suspect]
     Active Substance: SECUKINUMAB
  172. COSENTYX [Suspect]
     Active Substance: SECUKINUMAB
  173. COSENTYX [Suspect]
     Active Substance: SECUKINUMAB
  174. COSENTYX [Suspect]
     Active Substance: SECUKINUMAB
  175. COSENTYX [Suspect]
     Active Substance: SECUKINUMAB
  176. BETAMETHASONE DIPROPIONATE\CALCIPOTRIENE MONOHYDRATE [Suspect]
     Active Substance: BETAMETHASONE DIPROPIONATE\CALCIPOTRIENE MONOHYDRATE
     Indication: Product used for unknown indication
     Dosage: RARELY, QV
  177. BETAMETHASONE DIPROPIONATE\CALCIPOTRIENE MONOHYDRATE [Suspect]
     Active Substance: BETAMETHASONE DIPROPIONATE\CALCIPOTRIENE MONOHYDRATE
     Dosage: RARELY, QV
  178. BETAMETHASONE DIPROPIONATE\CALCIPOTRIENE MONOHYDRATE [Suspect]
     Active Substance: BETAMETHASONE DIPROPIONATE\CALCIPOTRIENE MONOHYDRATE
     Dosage: RARELY, QV
  179. BETAMETHASONE DIPROPIONATE\CALCIPOTRIENE MONOHYDRATE [Suspect]
     Active Substance: BETAMETHASONE DIPROPIONATE\CALCIPOTRIENE MONOHYDRATE
     Dosage: RARELY, QV
  180. BETAMETHASONE DIPROPIONATE\CALCIPOTRIENE MONOHYDRATE [Suspect]
     Active Substance: BETAMETHASONE DIPROPIONATE\CALCIPOTRIENE MONOHYDRATE
     Dosage: RARELY, QV
  181. BETAMETHASONE DIPROPIONATE\CALCIPOTRIENE MONOHYDRATE [Suspect]
     Active Substance: BETAMETHASONE DIPROPIONATE\CALCIPOTRIENE MONOHYDRATE
     Dosage: RARELY, QV
  182. BETAMETHASONE DIPROPIONATE\CALCIPOTRIENE MONOHYDRATE [Suspect]
     Active Substance: BETAMETHASONE DIPROPIONATE\CALCIPOTRIENE MONOHYDRATE
     Dosage: RARELY, QV
  183. BETAMETHASONE DIPROPIONATE\CALCIPOTRIENE MONOHYDRATE [Suspect]
     Active Substance: BETAMETHASONE DIPROPIONATE\CALCIPOTRIENE MONOHYDRATE
     Dosage: RARELY, QV
  184. BETAMETHASONE DIPROPIONATE\CALCIPOTRIENE MONOHYDRATE [Suspect]
     Active Substance: BETAMETHASONE DIPROPIONATE\CALCIPOTRIENE MONOHYDRATE
     Dosage: RARELY, QV
  185. BETAMETHASONE DIPROPIONATE\CALCIPOTRIENE MONOHYDRATE [Suspect]
     Active Substance: BETAMETHASONE DIPROPIONATE\CALCIPOTRIENE MONOHYDRATE
     Dosage: RARELY, QV
  186. BETAMETHASONE DIPROPIONATE\CALCIPOTRIENE MONOHYDRATE [Suspect]
     Active Substance: BETAMETHASONE DIPROPIONATE\CALCIPOTRIENE MONOHYDRATE
     Dosage: RARELY, QV
  187. BETAMETHASONE DIPROPIONATE\CALCIPOTRIENE MONOHYDRATE [Suspect]
     Active Substance: BETAMETHASONE DIPROPIONATE\CALCIPOTRIENE MONOHYDRATE
     Dosage: RARELY, QV
  188. BETAMETHASONE DIPROPIONATE\CALCIPOTRIENE MONOHYDRATE [Suspect]
     Active Substance: BETAMETHASONE DIPROPIONATE\CALCIPOTRIENE MONOHYDRATE
     Dosage: RARELY, QV
  189. BETAMETHASONE DIPROPIONATE\CALCIPOTRIENE MONOHYDRATE [Suspect]
     Active Substance: BETAMETHASONE DIPROPIONATE\CALCIPOTRIENE MONOHYDRATE
     Dosage: QD AS NEEDED (RARELY, QD)
  190. BETAMETHASONE DIPROPIONATE\CALCIPOTRIENE MONOHYDRATE [Suspect]
     Active Substance: BETAMETHASONE DIPROPIONATE\CALCIPOTRIENE MONOHYDRATE
     Dosage: QD (RARELY, QD)
  191. BETAMETHASONE DIPROPIONATE\CALCIPOTRIENE MONOHYDRATE [Suspect]
     Active Substance: BETAMETHASONE DIPROPIONATE\CALCIPOTRIENE MONOHYDRATE
     Dosage: AS NEEDED (RARELY, QV)
  192. BETAMETHASONE DIPROPIONATE\CALCIPOTRIENE MONOHYDRATE [Suspect]
     Active Substance: BETAMETHASONE DIPROPIONATE\CALCIPOTRIENE MONOHYDRATE
     Dosage: AS NEEDED, (RARELY, QV)
  193. BETAMETHASONE DIPROPIONATE\CALCIPOTRIENE MONOHYDRATE [Suspect]
     Active Substance: BETAMETHASONE DIPROPIONATE\CALCIPOTRIENE MONOHYDRATE
     Dosage: (RARELY, QV)
  194. BETAMETHASONE DIPROPIONATE\CALCIPOTRIENE MONOHYDRATE [Suspect]
     Active Substance: BETAMETHASONE DIPROPIONATE\CALCIPOTRIENE MONOHYDRATE
     Dosage: (RARELY, QV)
  195. BETAMETHASONE DIPROPIONATE\CALCIPOTRIENE MONOHYDRATE [Suspect]
     Active Substance: BETAMETHASONE DIPROPIONATE\CALCIPOTRIENE MONOHYDRATE
     Dosage: (RARELY, QV)
  196. BETAMETHASONE DIPROPIONATE\CALCIPOTRIENE MONOHYDRATE [Suspect]
     Active Substance: BETAMETHASONE DIPROPIONATE\CALCIPOTRIENE MONOHYDRATE
     Dosage: (RARELY, QV)
  197. BETAMETHASONE DIPROPIONATE\CALCIPOTRIENE MONOHYDRATE [Suspect]
     Active Substance: BETAMETHASONE DIPROPIONATE\CALCIPOTRIENE MONOHYDRATE
     Dosage: (RARELY, QV)
  198. BETAMETHASONE DIPROPIONATE\CALCIPOTRIENE MONOHYDRATE [Suspect]
     Active Substance: BETAMETHASONE DIPROPIONATE\CALCIPOTRIENE MONOHYDRATE
     Dosage: (RARELY, QV)
  199. BETAMETHASONE DIPROPIONATE\CALCIPOTRIENE MONOHYDRATE [Suspect]
     Active Substance: BETAMETHASONE DIPROPIONATE\CALCIPOTRIENE MONOHYDRATE
     Dosage: (RARELY, QV)
  200. BETAMETHASONE DIPROPIONATE\CALCIPOTRIENE MONOHYDRATE [Suspect]
     Active Substance: BETAMETHASONE DIPROPIONATE\CALCIPOTRIENE MONOHYDRATE
     Dosage: (RARELY, QV)
  201. BETAMETHASONE DIPROPIONATE\CALCIPOTRIENE MONOHYDRATE [Suspect]
     Active Substance: BETAMETHASONE DIPROPIONATE\CALCIPOTRIENE MONOHYDRATE
     Dosage: (RARELY, QV)
  202. BETAMETHASONE DIPROPIONATE\CALCIPOTRIENE MONOHYDRATE [Suspect]
     Active Substance: BETAMETHASONE DIPROPIONATE\CALCIPOTRIENE MONOHYDRATE
     Dosage: AS NEEDED (RARELY, QV)
  203. BETAMETHASONE DIPROPIONATE\CALCIPOTRIENE MONOHYDRATE [Suspect]
     Active Substance: BETAMETHASONE DIPROPIONATE\CALCIPOTRIENE MONOHYDRATE
     Dosage: AS NEEDED (RARELY, QV)
  204. BETAMETHASONE DIPROPIONATE\CALCIPOTRIENE MONOHYDRATE [Suspect]
     Active Substance: BETAMETHASONE DIPROPIONATE\CALCIPOTRIENE MONOHYDRATE
     Dosage: AS NEEDED (RARELY, QV)
  205. BETAMETHASONE DIPROPIONATE\CALCIPOTRIENE MONOHYDRATE [Suspect]
     Active Substance: BETAMETHASONE DIPROPIONATE\CALCIPOTRIENE MONOHYDRATE
     Dosage: AS NEEDED (RARELY, QV)
  206. BETAMETHASONE DIPROPIONATE\CALCIPOTRIENE MONOHYDRATE [Suspect]
     Active Substance: BETAMETHASONE DIPROPIONATE\CALCIPOTRIENE MONOHYDRATE
     Dosage: AS NEEDED (RARELY, QV)
  207. BETAMETHASONE DIPROPIONATE\CALCIPOTRIENE MONOHYDRATE [Suspect]
     Active Substance: BETAMETHASONE DIPROPIONATE\CALCIPOTRIENE MONOHYDRATE
     Dosage: AS NEEDED (RARELY, QV)
  208. HYDROXYUREA [Suspect]
     Active Substance: HYDROXYUREA
     Indication: Psoriasis
  209. HYDROXYUREA [Suspect]
     Active Substance: HYDROXYUREA
  210. HYDROXYUREA [Suspect]
     Active Substance: HYDROXYUREA
  211. HYDROXYUREA [Suspect]
     Active Substance: HYDROXYUREA
  212. HYDROXYUREA [Suspect]
     Active Substance: HYDROXYUREA
  213. HYDROXYUREA [Suspect]
     Active Substance: HYDROXYUREA
  214. HYDROXYUREA [Suspect]
     Active Substance: HYDROXYUREA
  215. HYDROXYUREA [Suspect]
     Active Substance: HYDROXYUREA
  216. HYDROXYUREA [Suspect]
     Active Substance: HYDROXYUREA
  217. HYDROXYUREA [Suspect]
     Active Substance: HYDROXYUREA
  218. HYDROXYUREA [Suspect]
     Active Substance: HYDROXYUREA
  219. HYDROXYUREA [Suspect]
     Active Substance: HYDROXYUREA
  220. HYDROXYUREA [Suspect]
     Active Substance: HYDROXYUREA
  221. HYDROXYUREA [Suspect]
     Active Substance: HYDROXYUREA
  222. HYDROXYUREA [Suspect]
     Active Substance: HYDROXYUREA
  223. HYDROXYUREA [Suspect]
     Active Substance: HYDROXYUREA
  224. HYDROXYUREA [Suspect]
     Active Substance: HYDROXYUREA
  225. HYDROXYUREA [Suspect]
     Active Substance: HYDROXYUREA
  226. HYDROXYUREA [Suspect]
     Active Substance: HYDROXYUREA
  227. HYDROXYUREA [Suspect]
     Active Substance: HYDROXYUREA
  228. HYDROXYUREA [Suspect]
     Active Substance: HYDROXYUREA
  229. HYDROXYUREA [Suspect]
     Active Substance: HYDROXYUREA
  230. HYDROXYUREA [Suspect]
     Active Substance: HYDROXYUREA
  231. HUMIRA [Suspect]
     Active Substance: ADALIMUMAB
     Indication: Psoriasis
  232. HUMIRA [Suspect]
     Active Substance: ADALIMUMAB
  233. HUMIRA [Suspect]
     Active Substance: ADALIMUMAB
  234. HUMIRA [Suspect]
     Active Substance: ADALIMUMAB
  235. HUMIRA [Suspect]
     Active Substance: ADALIMUMAB
  236. HUMIRA [Suspect]
     Active Substance: ADALIMUMAB
  237. HUMIRA [Suspect]
     Active Substance: ADALIMUMAB
  238. HUMIRA [Suspect]
     Active Substance: ADALIMUMAB
  239. HUMIRA [Suspect]
     Active Substance: ADALIMUMAB
  240. HUMIRA [Suspect]
     Active Substance: ADALIMUMAB
  241. HUMIRA [Suspect]
     Active Substance: ADALIMUMAB
  242. HUMIRA [Suspect]
     Active Substance: ADALIMUMAB
  243. HUMIRA [Suspect]
     Active Substance: ADALIMUMAB
  244. HUMIRA [Suspect]
     Active Substance: ADALIMUMAB
  245. HUMIRA [Suspect]
     Active Substance: ADALIMUMAB
  246. STELARA [Suspect]
     Active Substance: USTEKINUMAB
     Indication: Psoriasis
  247. STELARA [Suspect]
     Active Substance: USTEKINUMAB
  248. STELARA [Suspect]
     Active Substance: USTEKINUMAB
  249. STELARA [Suspect]
     Active Substance: USTEKINUMAB
  250. STELARA [Suspect]
     Active Substance: USTEKINUMAB
  251. STELARA [Suspect]
     Active Substance: USTEKINUMAB
  252. STELARA [Suspect]
     Active Substance: USTEKINUMAB
  253. STELARA [Suspect]
     Active Substance: USTEKINUMAB
  254. STELARA [Suspect]
     Active Substance: USTEKINUMAB
  255. STELARA [Suspect]
     Active Substance: USTEKINUMAB
  256. STELARA [Suspect]
     Active Substance: USTEKINUMAB
  257. STELARA [Suspect]
     Active Substance: USTEKINUMAB
  258. STELARA [Suspect]
     Active Substance: USTEKINUMAB
  259. STELARA [Suspect]
     Active Substance: USTEKINUMAB
  260. STELARA [Suspect]
     Active Substance: USTEKINUMAB
  261. STELARA [Suspect]
     Active Substance: USTEKINUMAB
  262. STELARA [Suspect]
     Active Substance: USTEKINUMAB
  263. STELARA [Suspect]
     Active Substance: USTEKINUMAB
  264. STELARA [Suspect]
     Active Substance: USTEKINUMAB
  265. STELARA [Suspect]
     Active Substance: USTEKINUMAB
  266. STELARA [Suspect]
     Active Substance: USTEKINUMAB
  267. STELARA [Suspect]
     Active Substance: USTEKINUMAB
  268. STELARA [Suspect]
     Active Substance: USTEKINUMAB
  269. STELARA [Suspect]
     Active Substance: USTEKINUMAB
  270. STELARA [Suspect]
     Active Substance: USTEKINUMAB
  271. STELARA [Suspect]
     Active Substance: USTEKINUMAB
  272. STELARA [Suspect]
     Active Substance: USTEKINUMAB
  273. STELARA [Suspect]
     Active Substance: USTEKINUMAB
  274. STELARA [Suspect]
     Active Substance: USTEKINUMAB
  275. STELARA [Suspect]
     Active Substance: USTEKINUMAB
  276. STELARA [Suspect]
     Active Substance: USTEKINUMAB
  277. STELARA [Suspect]
     Active Substance: USTEKINUMAB
  278. STELARA [Suspect]
     Active Substance: USTEKINUMAB
  279. STELARA [Suspect]
     Active Substance: USTEKINUMAB
  280. STELARA [Suspect]
     Active Substance: USTEKINUMAB
  281. STELARA [Suspect]
     Active Substance: USTEKINUMAB
  282. STELARA [Suspect]
     Active Substance: USTEKINUMAB
  283. STELARA [Suspect]
     Active Substance: USTEKINUMAB
  284. STELARA [Suspect]
     Active Substance: USTEKINUMAB
  285. STELARA [Suspect]
     Active Substance: USTEKINUMAB
  286. STELARA [Suspect]
     Active Substance: USTEKINUMAB
  287. STELARA [Suspect]
     Active Substance: USTEKINUMAB
  288. STELARA [Suspect]
     Active Substance: USTEKINUMAB
  289. STELARA [Suspect]
     Active Substance: USTEKINUMAB
  290. STELARA [Suspect]
     Active Substance: USTEKINUMAB
  291. STELARA [Suspect]
     Active Substance: USTEKINUMAB
  292. STELARA [Suspect]
     Active Substance: USTEKINUMAB
  293. STELARA [Suspect]
     Active Substance: USTEKINUMAB
  294. STELARA [Suspect]
     Active Substance: USTEKINUMAB
  295. STELARA [Suspect]
     Active Substance: USTEKINUMAB
  296. STELARA [Suspect]
     Active Substance: USTEKINUMAB
  297. STELARA [Suspect]
     Active Substance: USTEKINUMAB
  298. STELARA [Suspect]
     Active Substance: USTEKINUMAB
  299. STELARA [Suspect]
     Active Substance: USTEKINUMAB
  300. STELARA [Suspect]
     Active Substance: USTEKINUMAB
  301. STELARA [Suspect]
     Active Substance: USTEKINUMAB
  302. STELARA [Suspect]
     Active Substance: USTEKINUMAB
  303. SECUKINUMAB [Suspect]
     Active Substance: SECUKINUMAB
     Indication: Product used for unknown indication
  304. SECUKINUMAB [Suspect]
     Active Substance: SECUKINUMAB
  305. SECUKINUMAB [Suspect]
     Active Substance: SECUKINUMAB
  306. SECUKINUMAB [Suspect]
     Active Substance: SECUKINUMAB
  307. SECUKINUMAB [Suspect]
     Active Substance: SECUKINUMAB
  308. SECUKINUMAB [Suspect]
     Active Substance: SECUKINUMAB
  309. SECUKINUMAB [Suspect]
     Active Substance: SECUKINUMAB
  310. SECUKINUMAB [Suspect]
     Active Substance: SECUKINUMAB
  311. SECUKINUMAB [Suspect]
     Active Substance: SECUKINUMAB
  312. SECUKINUMAB [Suspect]
     Active Substance: SECUKINUMAB
  313. SECUKINUMAB [Suspect]
     Active Substance: SECUKINUMAB
  314. SECUKINUMAB [Suspect]
     Active Substance: SECUKINUMAB
  315. SECUKINUMAB [Suspect]
     Active Substance: SECUKINUMAB
  316. SECUKINUMAB [Suspect]
     Active Substance: SECUKINUMAB
  317. SECUKINUMAB [Suspect]
     Active Substance: SECUKINUMAB
  318. SECUKINUMAB [Suspect]
     Active Substance: SECUKINUMAB
  319. SECUKINUMAB [Suspect]
     Active Substance: SECUKINUMAB
  320. SECUKINUMAB [Suspect]
     Active Substance: SECUKINUMAB
  321. SECUKINUMAB [Suspect]
     Active Substance: SECUKINUMAB
  322. SECUKINUMAB [Suspect]
     Active Substance: SECUKINUMAB
  323. SECUKINUMAB [Suspect]
     Active Substance: SECUKINUMAB
  324. SECUKINUMAB [Suspect]
     Active Substance: SECUKINUMAB
  325. SECUKINUMAB [Suspect]
     Active Substance: SECUKINUMAB
  326. SECUKINUMAB [Suspect]
     Active Substance: SECUKINUMAB
  327. SECUKINUMAB [Suspect]
     Active Substance: SECUKINUMAB
  328. SECUKINUMAB [Suspect]
     Active Substance: SECUKINUMAB
  329. SECUKINUMAB [Suspect]
     Active Substance: SECUKINUMAB
  330. SECUKINUMAB [Suspect]
     Active Substance: SECUKINUMAB
  331. SECUKINUMAB [Suspect]
     Active Substance: SECUKINUMAB
  332. ACETAMINOPHEN\CODEINE PHOSPHATE [Suspect]
     Active Substance: ACETAMINOPHEN\CODEINE PHOSPHATE
     Indication: Product used for unknown indication
     Dosage: 30/500MG; TIME INTERVAL: 0.33333333 DAYS: 30/500MG
  333. ACETAMINOPHEN\CODEINE PHOSPHATE [Suspect]
     Active Substance: ACETAMINOPHEN\CODEINE PHOSPHATE
  334. DAIVOBET [Suspect]
     Active Substance: BETAMETHASONE DIPROPIONATE\CALCIPOTRIENE
     Indication: Product used for unknown indication
  335. DAIVOBET [Suspect]
     Active Substance: BETAMETHASONE DIPROPIONATE\CALCIPOTRIENE
     Dosage: AS NEEDED (RARELY, QV)
  336. DAIVOBET [Suspect]
     Active Substance: BETAMETHASONE DIPROPIONATE\CALCIPOTRIENE
     Dosage: AS NEEDED (RARELY, QV)
  337. DAIVOBET [Suspect]
     Active Substance: BETAMETHASONE DIPROPIONATE\CALCIPOTRIENE
     Dosage: RARELY, QV
  338. DAIVOBET [Suspect]
     Active Substance: BETAMETHASONE DIPROPIONATE\CALCIPOTRIENE
     Dosage: AS NEEDED (RARELY, QV)
  339. DAIVOBET [Suspect]
     Active Substance: BETAMETHASONE DIPROPIONATE\CALCIPOTRIENE
     Dosage: AS NEEDED (RARELY, QV)
  340. DAIVOBET [Suspect]
     Active Substance: BETAMETHASONE DIPROPIONATE\CALCIPOTRIENE
     Dosage: AS NEEDED (RARELY, QV)
  341. DAIVOBET [Suspect]
     Active Substance: BETAMETHASONE DIPROPIONATE\CALCIPOTRIENE
     Dosage: AS NEEDED (RARELY, QV)
  342. DAIVOBET [Suspect]
     Active Substance: BETAMETHASONE DIPROPIONATE\CALCIPOTRIENE
     Dosage: AS NEEDED (RARELY, QV)
  343. DAIVOBET [Suspect]
     Active Substance: BETAMETHASONE DIPROPIONATE\CALCIPOTRIENE
     Dosage: AS NEEDED (RARELY, QV)
  344. DAIVOBET [Suspect]
     Active Substance: BETAMETHASONE DIPROPIONATE\CALCIPOTRIENE
     Dosage: AS NEEDED (RARELY, QV)
  345. DAIVOBET [Suspect]
     Active Substance: BETAMETHASONE DIPROPIONATE\CALCIPOTRIENE
     Dosage: AS NEEDED (RARELY, QV)
  346. DAIVOBET [Suspect]
     Active Substance: BETAMETHASONE DIPROPIONATE\CALCIPOTRIENE
     Dosage: AS NEEDED (RARELY, QV)
  347. DAIVOBET [Suspect]
     Active Substance: BETAMETHASONE DIPROPIONATE\CALCIPOTRIENE
     Dosage: AS NEEDED (RARELY, QV)
  348. DAIVOBET [Suspect]
     Active Substance: BETAMETHASONE DIPROPIONATE\CALCIPOTRIENE
     Dosage: AS NEEDED (RARELY, QV)
  349. DAIVOBET [Suspect]
     Active Substance: BETAMETHASONE DIPROPIONATE\CALCIPOTRIENE
     Dosage: AS NEEDED (RARELY, QV)
  350. DAIVOBET [Suspect]
     Active Substance: BETAMETHASONE DIPROPIONATE\CALCIPOTRIENE
     Dosage: AS NEEDED (RARELY, QV)
  351. DAIVOBET [Suspect]
     Active Substance: BETAMETHASONE DIPROPIONATE\CALCIPOTRIENE
     Dosage: AS NEEDED (RARELY, QV)
  352. DAIVOBET [Suspect]
     Active Substance: BETAMETHASONE DIPROPIONATE\CALCIPOTRIENE
     Dosage: AS NEEDED (RARELY, QV)
  353. DAIVOBET [Suspect]
     Active Substance: BETAMETHASONE DIPROPIONATE\CALCIPOTRIENE
     Dosage: AS NEEDED (RARELY, QV)
  354. DAIVOBET [Suspect]
     Active Substance: BETAMETHASONE DIPROPIONATE\CALCIPOTRIENE
     Dosage: AS NEEDED (RARELY, QV)
  355. DAIVOBET [Suspect]
     Active Substance: BETAMETHASONE DIPROPIONATE\CALCIPOTRIENE
     Dosage: AS NEEDED (RARELY, QV)
  356. DAIVOBET [Suspect]
     Active Substance: BETAMETHASONE DIPROPIONATE\CALCIPOTRIENE
     Dosage: AS NEEDED (RARELY, QV)
  357. DAIVOBET [Suspect]
     Active Substance: BETAMETHASONE DIPROPIONATE\CALCIPOTRIENE
  358. BETAMETHASONE [Suspect]
     Active Substance: BETAMETHASONE
     Indication: Product used for unknown indication
  359. BETAMETHASONE DIPROPIONATE [Suspect]
     Active Substance: BETAMETHASONE DIPROPIONATE
     Indication: Product used for unknown indication
  360. BETAMETHASONE DIPROPIONATE [Suspect]
     Active Substance: BETAMETHASONE DIPROPIONATE
  361. BETAMETHASONE DIPROPIONATE [Suspect]
     Active Substance: BETAMETHASONE DIPROPIONATE
  362. BETAMETHASONE DIPROPIONATE [Suspect]
     Active Substance: BETAMETHASONE DIPROPIONATE
  363. CODEINE [Suspect]
     Active Substance: CODEINE
     Indication: Product used for unknown indication
  364. CODEINE [Suspect]
     Active Substance: CODEINE
     Dosage: STRENGTH: 30/500MG; TIME INTERVAL: 0.33333333 DAYS
  365. CODEINE [Suspect]
     Active Substance: CODEINE
  366. ACETAMINOPHEN\CODEINE PHOSPHATE [Suspect]
     Active Substance: ACETAMINOPHEN\CODEINE PHOSPHATE
     Indication: Product used for unknown indication
     Dosage: 1 TIME EVERY DAY
  367. ACETAMINOPHEN\CODEINE PHOSPHATE [Suspect]
     Active Substance: ACETAMINOPHEN\CODEINE PHOSPHATE
     Dosage: 2 DF, TID (THREE TIMES A DAY) 6 DOSAGE FORM, QD
  368. ACETAMINOPHEN\CODEINE PHOSPHATE [Suspect]
     Active Substance: ACETAMINOPHEN\CODEINE PHOSPHATE
     Dosage: 1 TIME EVERY DAY
  369. ACETAMINOPHEN\CODEINE PHOSPHATE [Suspect]
     Active Substance: ACETAMINOPHEN\CODEINE PHOSPHATE
  370. ACETAMINOPHEN\CODEINE PHOSPHATE [Suspect]
     Active Substance: ACETAMINOPHEN\CODEINE PHOSPHATE
     Dosage: 6 DOSAGE FORM (1 DAY), 30/500 MG, TIME INTERVAL: 0.33333333 DAYS
  371. ACETAMINOPHEN\CODEINE PHOSPHATE [Suspect]
     Active Substance: ACETAMINOPHEN\CODEINE PHOSPHATE
     Dosage: 1 TIME EVERY DAY
  372. ACETAMINOPHEN\CODEINE PHOSPHATE [Suspect]
     Active Substance: ACETAMINOPHEN\CODEINE PHOSPHATE
     Dosage: 1 TIME EVERY DAY
  373. ACETAMINOPHEN\CODEINE PHOSPHATE [Suspect]
     Active Substance: ACETAMINOPHEN\CODEINE PHOSPHATE
     Dosage: 1 TIME EVERY DAY
  374. ACETAMINOPHEN\CODEINE PHOSPHATE [Suspect]
     Active Substance: ACETAMINOPHEN\CODEINE PHOSPHATE
     Dosage: 1 TIME EVERY DAY
  375. ACETAMINOPHEN\CODEINE PHOSPHATE [Suspect]
     Active Substance: ACETAMINOPHEN\CODEINE PHOSPHATE
     Dosage: 1 TIME EVERY DAY
  376. ACETAMINOPHEN\CODEINE PHOSPHATE [Suspect]
     Active Substance: ACETAMINOPHEN\CODEINE PHOSPHATE
     Dosage: 1 TIME EVERY DAY
  377. ACETAMINOPHEN\CODEINE PHOSPHATE [Suspect]
     Active Substance: ACETAMINOPHEN\CODEINE PHOSPHATE
     Dosage: 1 TIME EVERY DAY
  378. ACETAMINOPHEN\CODEINE PHOSPHATE [Suspect]
     Active Substance: ACETAMINOPHEN\CODEINE PHOSPHATE
     Dosage: 1 TIME EVERY DAY
  379. ACETAMINOPHEN\CODEINE PHOSPHATE [Suspect]
     Active Substance: ACETAMINOPHEN\CODEINE PHOSPHATE
     Dosage: 1 TIME EVERY DAY
  380. ACETAMINOPHEN\CODEINE PHOSPHATE [Suspect]
     Active Substance: ACETAMINOPHEN\CODEINE PHOSPHATE
     Indication: Product used for unknown indication
     Dosage: 2 DF, TID (THREE TIMES A DAY) 6 DOSAGE FORM, QD
  381. METHOTREXATE [Suspect]
     Active Substance: METHOTREXATE
     Indication: Psoriasis
  382. METHOTREXATE [Suspect]
     Active Substance: METHOTREXATE
  383. METHOTREXATE [Suspect]
     Active Substance: METHOTREXATE
  384. METHOTREXATE [Suspect]
     Active Substance: METHOTREXATE
     Dosage: 6 DOSAGE FORM PER DAY, 30/500MG 2 TABLETS TDS, TIME INTERVAL
  385. METHOTREXATE [Suspect]
     Active Substance: METHOTREXATE
  386. METHOTREXATE [Suspect]
     Active Substance: METHOTREXATE
  387. METHOTREXATE [Suspect]
     Active Substance: METHOTREXATE
  388. METHOTREXATE [Suspect]
     Active Substance: METHOTREXATE
  389. METHOTREXATE [Suspect]
     Active Substance: METHOTREXATE
  390. METHOTREXATE [Suspect]
     Active Substance: METHOTREXATE
  391. METHOTREXATE [Suspect]
     Active Substance: METHOTREXATE
  392. METHOTREXATE [Suspect]
     Active Substance: METHOTREXATE
  393. METHOTREXATE [Suspect]
     Active Substance: METHOTREXATE
  394. METHOTREXATE [Suspect]
     Active Substance: METHOTREXATE
  395. METHOTREXATE [Suspect]
     Active Substance: METHOTREXATE
  396. METHOTREXATE [Suspect]
     Active Substance: METHOTREXATE
  397. COSENTYX [Concomitant]
     Active Substance: SECUKINUMAB

REACTIONS (8)
  - Hypertension [Unknown]
  - Wheezing [Unknown]
  - Burning sensation [Unknown]
  - Rash pruritic [Unknown]
  - Pruritus genital [Unknown]
  - Drug ineffective [Unknown]
  - Therapeutic product effect incomplete [Unknown]
  - Inappropriate schedule of product administration [Unknown]
